FAERS Safety Report 4463108-0 (Version None)
Quarter: 2004Q3

REPORT INFORMATION
  Report Type: 
  Country: None (occurrence: None)
  Receive Date: 20040930
  Receipt Date: 20040920
  Transmission Date: 20050211
  Serious: Yes (Hospitalization)
  Sender: FDA-Public Use
  Company Number: ES-ABBOTT-04P-144-0273869-00

PATIENT
  Age: 54 Year
  Sex: Male

DRUGS (2)
  1. KALETRA [Suspect]
     Indication: HIV INFECTION
     Route: 048
     Dates: start: 20030307
  2. ZIDOVUDINE W/LAMIVUDINE [Concomitant]
     Indication: HIV INFECTION
     Dates: start: 20030307

REACTIONS (13)
  - EOSINOPHIL COUNT INCREASED [None]
  - EOSINOPHILIA [None]
  - GIARDIASIS [None]
  - INSOMNIA [None]
  - LOSS OF CONSCIOUSNESS [None]
  - OESOPHAGEAL CANDIDIASIS [None]
  - PARASITIC INFECTION INTESTINAL [None]
  - PNEUMOCYSTIS CARINII PNEUMONIA [None]
  - PNEUMONIA CYTOMEGALOVIRAL [None]
  - PNEUMONITIS [None]
  - PRURITUS [None]
  - RESPIRATORY FAILURE [None]
  - STRONGYLOIDIASIS [None]
